FAERS Safety Report 10272524 (Version 1)
Quarter: 2014Q2

REPORT INFORMATION
  Report Type: Spontaneous
  Country: IT (occurrence: None)
  Receive Date: 20140630
  Receipt Date: 20140630
  Transmission Date: 20141212
  Serious: Yes (Death)
  Sender: FDA-Public Use
  Company Number: 2404248

PATIENT
  Age: 81 Year
  Sex: Female

DRUGS (9)
  1. DOCETAXEL [Suspect]
     Indication: BREAST CANCER
  2. GEMCITABINE HYDROCHLORIDE [Suspect]
     Indication: BREAST CANCER
  3. VINORELBINE TARTRATE [Suspect]
     Indication: BREAST CANCER
  4. CAPECITABINE [Suspect]
     Indication: BREAST CANCER
  5. ANASTROZOLE [Suspect]
     Indication: BREAST CANCER
  6. PEGYLATED LIPOSOMAL DOXORUBICIN HYDROCHLORIDE [Suspect]
     Indication: BREAST CANCER
  7. TRASTUZUMAB [Suspect]
     Indication: BREAST CANCER
  8. FULVESTRANT [Suspect]
     Indication: BREAST CANCER
  9. LAPATINIB [Suspect]
     Indication: BREAST CANCER

REACTIONS (7)
  - Breast cancer [None]
  - Malignant neoplasm progression [None]
  - Squamous cell carcinoma of the tongue [None]
  - Refusal of treatment by patient [None]
  - Haemorrhagic anaemia [None]
  - Cachexia [None]
  - Hypophagia [None]
